FAERS Safety Report 5612325-2 (Version None)
Quarter: 2008Q1

REPORT INFORMATION
  Report Type: 
  Country: None (occurrence: None)
  Receive Date: 20080129
  Receipt Date: 20080110
  Transmission Date: 20080703
  Serious: Yes (Hospitalization)
  Sender: FDA-Public Use
  Company Number: CHNY2008PT00537

PATIENT
  Age: 47 Year
  Sex: Female
  Weight: 79 kg

DRUGS (3)
  1. ACETYLSALICYLIC ACID SRT [Suspect]
     Indication: THROMBOPHLEBITIS
     Dosage: 1 DF, QD, ORAL
     Route: 048
     Dates: start: 20070301, end: 20070401
  2. VENORUTON         (O-(B-HYDROXYETHYL)RUTOSIDES) POWDER [Suspect]
     Indication: THROMBOPHLEBITIS
     Dosage: 1 DF, QD, ORAL
     Route: 048
     Dates: start: 20070301, end: 20070401
  3. SERRAPEPTASE                             (SERRAPEPTASE) [Suspect]
     Indication: THROMBOPHLEBITIS
     Dosage: 1 DF, QD, ORAL
     Route: 048
     Dates: start: 20070301, end: 20070401

REACTIONS (1)
  - TOXIC SKIN ERUPTION [None]
